FAERS Safety Report 8119129-X (Version None)
Quarter: 2012Q1

REPORT INFORMATION
  Report Type: 
  Country: None (occurrence: None)
  Receive Date: 20120207
  Receipt Date: 20120207
  Transmission Date: 20120608
  Serious: Yes (Hospitalization)
  Sender: FDA-Public Use
  Company Number: None

PATIENT
  Age: 45 Year
  Sex: Female

DRUGS (2)
  1. INCIVEK [Concomitant]
     Indication: HEPATITIS C
     Dosage: 750 MG
     Route: 048
  2. PEGASYS [Suspect]
     Indication: HEPATITIS C
     Dosage: 180 MCG
     Route: 058

REACTIONS (3)
  - ANAEMIA [None]
  - PANCREATITIS [None]
  - DEHYDRATION [None]
